FAERS Safety Report 23436534 (Version 1)
Quarter: 2024Q1

REPORT INFORMATION
  Report Type: Spontaneous
  Country: US (occurrence: None)
  Receive Date: 20240124
  Receipt Date: 20240124
  Transmission Date: 20240410
  Serious: No
  Sender: FDA-Public Use
  Company Number: US-ARIS GLOBAL-SUP202310-004236

PATIENT
  Age: 7 Year
  Sex: Male

DRUGS (4)
  1. QELBREE [Suspect]
     Active Substance: VILOXAZINE HYDROCHLORIDE
     Indication: Attention deficit hyperactivity disorder
     Route: 048
  2. CLARITIN [Suspect]
     Active Substance: LORATADINE
     Indication: Antiallergic therapy
     Dosage: NOT PROVIDED
  3. MELATONIN [Concomitant]
     Active Substance: MELATONIN
     Dosage: NOT PROVIDED
  4. BENADRYL [Concomitant]
     Active Substance: DIPHENHYDRAMINE HYDROCHLORIDE
     Dosage: IF HE COULD NOT AT SLEEP AT NIGHT

REACTIONS (3)
  - Anger [Unknown]
  - Disruptive mood dysregulation disorder [Unknown]
  - Drug interaction [Unknown]
